FAERS Safety Report 13681036 (Version 1)
Quarter: 2017Q2

REPORT INFORMATION
  Report Type: Spontaneous
  Country: US (occurrence: US)
  Receive Date: 20170623
  Receipt Date: 20170623
  Transmission Date: 20170830
  Serious: No
  Sender: FDA-Public Use
  Company Number: US-TEVA-735518ACC

PATIENT
  Sex: Male

DRUGS (1)
  1. FINASTERIDE. [Suspect]
     Active Substance: FINASTERIDE
     Dates: start: 20170113

REACTIONS (3)
  - Product physical issue [Unknown]
  - Erectile dysfunction [Unknown]
  - Spermatozoa abnormal [Unknown]
